FAERS Safety Report 4443490-0 (Version None)
Quarter: 2004Q3

REPORT INFORMATION
  Report Type: 
  Country: None (occurrence: None)
  Receive Date: 20040903
  Receipt Date: 20040903
  Transmission Date: 20050211
  Serious: No
  Sender: FDA-Public Use
  Company Number: None

PATIENT
  Age: 64 Year
  Sex: Male
  Weight: 91 kg

DRUGS (2)
  1. DAPTOMYCIN 500 MG [Suspect]
     Indication: BACTERAEMIA
     Dosage: 750 MG QD INTRAVENOUS
     Route: 042
     Dates: start: 20040719, end: 20040804
  2. DAPTOMYCIN 500 MG [Suspect]
     Indication: ENDOCARDITIS
     Dosage: 750 MG QD INTRAVENOUS
     Route: 042
     Dates: start: 20040719, end: 20040804

REACTIONS (2)
  - ASTHENIA [None]
  - PAIN IN EXTREMITY [None]
